FAERS Safety Report 6026954-8 (Version None)
Quarter: 2009Q1

REPORT INFORMATION
  Report Type: 
  Country: None (occurrence: None)
  Receive Date: 20090105
  Receipt Date: 20081224
  Transmission Date: 20090719
  Serious: Yes (Other)
  Sender: FDA-Public Use
  Company Number: PHHY2008GB32258

PATIENT
  Sex: Female

DRUGS (1)
  1. CLOZARIL [Suspect]
     Indication: SCHIZOPHRENIA
     Dosage: 150 MG/DAY
     Dates: start: 20081006, end: 20081122

REACTIONS (5)
  - DIZZINESS [None]
  - GAIT DISTURBANCE [None]
  - MYALGIA [None]
  - SOMNOLENCE [None]
  - TREMOR [None]
